FAERS Safety Report 5036831-7 (Version None)
Quarter: 2006Q2

REPORT INFORMATION
  Report Type: 
  Country: None (occurrence: None)
  Receive Date: 20060612
  Receipt Date: 20050607
  Transmission Date: 20061013
  Serious: Yes (Disabling)
  Sender: FDA-Public Use
  Company Number: WAES 0506USA01239

PATIENT
  Age: 79 Year
  Sex: Female

DRUGS (10)
  1. COSOPT [Suspect]
     Indication: GLAUCOMA
     Dosage: 4 DROPS/DAILY/OPHT
     Route: 047
  2. DIOVAN [Concomitant]
  3. NIFEREX [Concomitant]
  4. PLAVIX [Concomitant]
  5. SYNTHROID [Concomitant]
  6. XALATAN [Concomitant]
  7. ZOCOR [Concomitant]
  8. CALCIUM (UNSPECIFIED) [Concomitant]
  9. GLYBURIDE [Concomitant]
  10. GUAR GUM [Concomitant]

REACTIONS (1)
  - EYE IRRITATION [None]
